APPROVED DRUG PRODUCT: TYBOST
Active Ingredient: COBICISTAT
Strength: 150MG
Dosage Form/Route: TABLET;ORAL
Application: N203094 | Product #001
Applicant: GILEAD SCIENCES INC
Approved: Sep 24, 2014 | RLD: Yes | RS: Yes | Type: RX

PATENTS:
Patent 8148374 | Expires: Sep 3, 2029
Patent 10039718 | Expires: Oct 6, 2032
Patent 8148374*PED | Expires: Mar 3, 2030
Patent 10039718*PED | Expires: Apr 6, 2033

EXCLUSIVITY:
Code: ODE-260 | Date: Aug 22, 2026